FAERS Safety Report 9906476 (Version 2)
Quarter: 2014Q1

REPORT INFORMATION
  Report Type: Spontaneous
  Country: US (occurrence: US)
  Receive Date: 20140218
  Receipt Date: 20140218
  Transmission Date: 20141002
  Serious: No
  Sender: FDA-Public Use
  Company Number: US-GILEAD-2012-0052818

PATIENT
  Age: 67 Year
  Sex: Female

DRUGS (20)
  1. LETAIRIS [Suspect]
     Indication: PULMONARY ARTERIAL HYPERTENSION
     Dosage: 5 MG, UNK
     Route: 048
     Dates: start: 20120301, end: 20120306
  2. PREGABALIN [Concomitant]
  3. ALENDRONATE SODIUM [Concomitant]
  4. ROSUVASTATIN [Concomitant]
  5. ROPINIROLE [Concomitant]
  6. HYDROCHLOROTHIAZIDE W/TELMISARTAN [Concomitant]
  7. CYANOCOBALAMIN [Concomitant]
  8. LANSOPRAZOLE [Concomitant]
  9. HYDROXYCHLOROQUINE [Concomitant]
  10. TRAMADOL [Concomitant]
  11. LEVOTHYROXINE [Concomitant]
  12. MEMANTINE [Concomitant]
  13. DOCUSATE SODIUM [Concomitant]
  14. LIDOCAINE [Concomitant]
  15. TRAZODONE [Concomitant]
  16. CLONAZEPAM [Concomitant]
  17. METHADONE [Concomitant]
  18. CLOPIDOGREL [Concomitant]
  19. ASPIRIN [Concomitant]
  20. MULTIVITAMINS [Concomitant]

REACTIONS (2)
  - Visual impairment [Recovered/Resolved]
  - Dyspnoea [Recovered/Resolved]
